FAERS Safety Report 4956232-7 (Version None)
Quarter: 2006Q1

REPORT INFORMATION
  Report Type: 
  Country: None (occurrence: None)
  Receive Date: 20060323
  Receipt Date: 20060309
  Transmission Date: 20060701
  Serious: Yes (Other)
  Sender: FDA-Public Use
  Company Number: 13700

PATIENT

DRUGS (2)
  1. VINORELBINE TARTRATE [Suspect]
  2. CISPLATIN [Suspect]

REACTIONS (2)
  - CONDITION AGGRAVATED [None]
  - HAEMOLYTIC ANAEMIA [None]
